FAERS Safety Report 6622245-2 (Version None)
Quarter: 2010Q1

REPORT INFORMATION
  Report Type: 
  Country: None (occurrence: None)
  Receive Date: 20100304
  Receipt Date: 20100217
  Transmission Date: 20100710
  Serious: Yes (Other)
  Sender: FDA-Public Use
  Company Number: GB-DEXPHARM-20100140

PATIENT
  Age: 69 Year
  Sex: Female

DRUGS (5)
  1. OMEPRAZOLE [Suspect]
     Dosage: 20 MG MILLGRAM(S) SEP. DOSAGES/ INTERVAL: 1 IN 1 DAY ORAL
     Route: 048
     Dates: start: 20071128, end: 20080502
  2. ATORVASTATIN CALCIUM [Concomitant]
  3. BENDROFLUMETHIAZIDE [Concomitant]
  4. CANDESARTAN [Concomitant]
  5. DICLOFEFNAC [Concomitant]

REACTIONS (1)
  - HYPOMAGNESAEMIA [None]
